FAERS Safety Report 10034521 (Version 2)
Quarter: 2014Q1

REPORT INFORMATION
  Report Type: Spontaneous
  Country: US (occurrence: None)
  Receive Date: 20140321
  Receipt Date: 20140321
  Transmission Date: 20141002
  Serious: Yes (Other)
  Sender: FDA-Public Use
  Company Number: ADR-2014-00431

PATIENT
  Age: 11 Year
  Sex: Male

DRUGS (2)
  1. BACLOFEN INTRATHECAL [Suspect]
     Indication: MUSCLE SPASTICITY
     Dosage: }1050MCG/DAY
  2. LORAZEPAM [Suspect]

REACTIONS (5)
  - Sleep apnoea syndrome [None]
  - Dysphagia [None]
  - Kyphosis [None]
  - Scoliosis [None]
  - Disease progression [None]
